FAERS Safety Report 8370022-7 (Version None)
Quarter: 2012Q2

REPORT INFORMATION
  Report Type: 
  Country: None (occurrence: None)
  Receive Date: 20120518
  Receipt Date: 20120515
  Transmission Date: 20120825
  Serious: Yes (Other)
  Sender: FDA-Public Use
  Company Number: US-JNJFOC-20120507014

PATIENT
  Sex: Male

DRUGS (1)
  1. BENADRYL [Suspect]
     Indication: PRODUCT USED FOR UNKNOWN INDICATION
     Dosage: USED FOR 3 YEARS
     Route: 048
     Dates: end: 20120119

REACTIONS (10)
  - ASTHENIA [None]
  - ANXIETY [None]
  - PANIC DISORDER [None]
  - FEELING ABNORMAL [None]
  - CONVULSION [None]
  - MUSCULOSKELETAL PAIN [None]
  - DEPENDENCE [None]
  - TREMOR [None]
  - ANGINA PECTORIS [None]
  - CHEST PAIN [None]
